FAERS Safety Report 5303324-9 (Version None)
Quarter: 2007Q2

REPORT INFORMATION
  Report Type: 
  Country: None (occurrence: None)
  Receive Date: 20070420
  Receipt Date: 20070412
  Transmission Date: 20071010
  Serious: Yes (Other)
  Sender: FDA-Public Use
  Company Number: GB-GLAXOSMITHKLINE-B0467059A

PATIENT
  Age: 51 Year
  Weight: 126 kg

DRUGS (3)
  1. AUGMENTIN '125' [Suspect]
     Indication: SURGERY
     Route: 048
     Dates: start: 20070313, end: 20070315
  2. BETNESOL [Concomitant]
     Indication: SURGERY
     Route: 065
     Dates: start: 20070314
  3. PREDNISOLONE [Concomitant]
     Indication: SURGERY
     Route: 048
     Dates: start: 20070314

REACTIONS (1)
  - SUICIDAL IDEATION [None]
